FAERS Safety Report 22152062 (Version 1)
Quarter: 2023Q1

REPORT INFORMATION
  Report Type: Spontaneous
  Country: US (occurrence: None)
  Receive Date: 20230328
  Receipt Date: 20230328
  Transmission Date: 20230417
  Serious: No
  Sender: FDA-Public Use
  Company Number: None

PATIENT
  Age: 74 Year
  Sex: Female
  Weight: 54.43 kg

DRUGS (11)
  1. IBRANCE [Suspect]
     Active Substance: PALBOCICLIB
     Indication: Breast cancer female
     Dosage: 125MG 21D ON 7D OFF ORAL
     Route: 048
  2. ADVIL [Concomitant]
     Active Substance: IBUPROFEN
  3. ATORVASTATIN [Concomitant]
     Active Substance: ATORVASTATIN
  4. FOSAMAX [Concomitant]
     Active Substance: ALENDRONATE SODIUM
  5. MELATONIN [Concomitant]
     Active Substance: MELATONIN
  6. CALCIUM/MAGNESIUM/ZINC [Concomitant]
  7. NORVASC [Concomitant]
     Active Substance: AMLODIPINE BESYLATE
  8. OXYCODONE [Concomitant]
     Active Substance: OXYCODONE
  9. PROAIR HFA [Concomitant]
     Active Substance: ALBUTEROL SULFATE
  10. TAMOXIFEN [Concomitant]
     Active Substance: TAMOXIFEN
  11. VITAMIN D3 [Concomitant]
     Active Substance: CHOLECALCIFEROL

REACTIONS (4)
  - Malignant neoplasm progression [None]
  - Breast cancer female [None]
  - Metastases to bone [None]
  - Therapy change [None]
